FAERS Safety Report 22237829 (Version 5)
Quarter: 2025Q1

REPORT INFORMATION
  Report Type: Spontaneous
  Country: US (occurrence: US)
  Receive Date: 20230421
  Receipt Date: 20250204
  Transmission Date: 20250409
  Serious: No
  Sender: SANOFI AVENTIS
  Company Number: US-SA-SAC20230222000586

PATIENT
  Age: 61 Year
  Sex: Male

DRUGS (18)
  1. DUPIXENT [Suspect]
     Active Substance: DUPILUMAB
     Indication: Asthma
     Dosage: 300 MG, QOW
     Route: 058
     Dates: start: 20220519
  2. ATORVASTATIN [Concomitant]
     Active Substance: ATORVASTATIN
  3. AZITHROMYCIN [Concomitant]
     Active Substance: AZITHROMYCIN
  4. GABAPENTIN [Concomitant]
     Active Substance: GABAPENTIN
  5. IPRATROPIUM [Concomitant]
     Active Substance: IPRATROPIUM
  6. LISINOPRIL [Concomitant]
     Active Substance: LISINOPRIL
  7. MELOXICAM [Concomitant]
     Active Substance: MELOXICAM
  8. MONTELUKAST [Concomitant]
     Active Substance: MONTELUKAST
  9. OXYCODONE [Concomitant]
     Active Substance: OXYCODONE
  10. TRAMADOL HCL [Concomitant]
     Active Substance: TRAMADOL HYDROCHLORIDE
  11. VENTOLIN HFA [Concomitant]
     Active Substance: ALBUTEROL SULFATE
  12. CYCLOBENZAPRINE [Concomitant]
     Active Substance: CYCLOBENZAPRINE
  13. FLUTICASONE FUROATE\SALMETEROL XINAFOATE [Concomitant]
     Active Substance: FLUTICASONE FUROATE\SALMETEROL XINAFOATE
  14. METOPROLOL SUCCINATE [Concomitant]
     Active Substance: METOPROLOL SUCCINATE
  15. EPLERENONE [Concomitant]
     Active Substance: EPLERENONE
  16. NITROGLYCERIN [Concomitant]
     Active Substance: NITROGLYCERIN
  17. METOPROLOL SUCCINATE [Concomitant]
     Active Substance: METOPROLOL SUCCINATE
  18. FLUTICASONE PROPIONATE\SALMETEROL XINAFOATE [Concomitant]
     Active Substance: FLUTICASONE PROPIONATE\SALMETEROL XINAFOATE

REACTIONS (6)
  - Impaired quality of life [Unknown]
  - Respiratory tract infection [Not Recovered/Not Resolved]
  - Pharyngitis [Recovering/Resolving]
  - Asthma [Recovering/Resolving]
  - Product dose omission in error [Unknown]
  - Drug ineffective [Unknown]

NARRATIVE: CASE EVENT DATE: 20240101
